FAERS Safety Report 19755467 (Version 2)
Quarter: 2021Q3

REPORT INFORMATION
  Report Type: Spontaneous
  Country: SG (occurrence: SG)
  Receive Date: 20210827
  Receipt Date: 20210831
  Transmission Date: 20211014
  Serious: Yes (Hospitalization, Other)
  Sender: FDA-Public Use
  Company Number: SG-ROCHE-2894564

PATIENT
  Age: 43 Year
  Sex: Female

DRUGS (2)
  1. AVASTIN [Suspect]
     Active Substance: BEVACIZUMAB
     Indication: NEOPLASM
     Route: 065
  2. AVASTIN [Suspect]
     Active Substance: BEVACIZUMAB
     Indication: OVARIAN CANCER

REACTIONS (4)
  - Critical illness [Unknown]
  - Ascites [Unknown]
  - Recurrent cancer [Unknown]
  - Weight decreased [Unknown]
